FAERS Safety Report 25329288 (Version 1)
Quarter: 2025Q2

REPORT INFORMATION
  Report Type: Spontaneous
  Country: MY (occurrence: MY)
  Receive Date: 20250519
  Receipt Date: 20250519
  Transmission Date: 20250717
  Serious: Yes (Hospitalization, Other)
  Sender: ROCHE
  Company Number: MY-002147023-NVSC2025MY078040

PATIENT
  Age: 56 Year
  Sex: Male

DRUGS (5)
  1. RANIBIZUMAB [Suspect]
     Active Substance: RANIBIZUMAB
     Indication: Diabetic retinal oedema
     Dosage: UNK, QMO
     Route: 065
     Dates: start: 201805
  2. RANIBIZUMAB [Suspect]
     Active Substance: RANIBIZUMAB
     Route: 065
  3. RANIBIZUMAB [Suspect]
     Active Substance: RANIBIZUMAB
     Route: 065
  4. FENOFIBRATE [Concomitant]
     Active Substance: FENOFIBRATE
     Indication: Product used for unknown indication
  5. CALCIUM DOBESILATE [Concomitant]
     Active Substance: CALCIUM DOBESILATE
     Indication: Product used for unknown indication

REACTIONS (5)
  - Pneumonia [Unknown]
  - Retinal oedema [Unknown]
  - Incorrect product administration duration [Unknown]
  - Glycosylated haemoglobin decreased [Unknown]
  - Visual acuity reduced [Unknown]
